FAERS Safety Report 24777938 (Version 2)
Quarter: 2025Q2

REPORT INFORMATION
  Report Type: Spontaneous
  Country: US (occurrence: US)
  Receive Date: 20241226
  Receipt Date: 20250429
  Transmission Date: 20250716
  Serious: No
  Sender: PFIZER
  Company Number: US-PFIZER INC-202400284615

PATIENT
  Age: 64 Year
  Sex: Female
  Weight: 56.7 kg

DRUGS (3)
  1. VELSIPITY [Suspect]
     Active Substance: ETRASIMOD ARGININE
     Indication: Colitis ulcerative
     Dosage: 2 MG, 1X/DAY
     Dates: start: 2024
  2. BUDESONIDE [Concomitant]
     Active Substance: BUDESONIDE
     Indication: Colitis ulcerative
     Dosage: HAS BEEN TAKING, AT LEAST 3 YEARS, ABOUT 3 AND A HALF YEARS
     Dates: start: 2021
  3. VENLAFAXINE [Concomitant]
     Active Substance: VENLAFAXINE HYDROCHLORIDE
     Indication: Depression
     Dosage: 75 MG, 1X/DAY
     Dates: start: 202404

REACTIONS (3)
  - Rash erythematous [Unknown]
  - Rash pruritic [Unknown]
  - Intentional product misuse [Unknown]

NARRATIVE: CASE EVENT DATE: 20241218
